FAERS Safety Report 7845117-4 (Version None)
Quarter: 2011Q4

REPORT INFORMATION
  Report Type: 
  Country: None (occurrence: None)
  Receive Date: 20111025
  Receipt Date: 20110118
  Transmission Date: 20120403
  Serious: Yes (Hospitalization)
  Sender: FDA-Public Use
  Company Number: US-GLAXOSMITHKLINE-A0908105A

PATIENT
  Age: 66 Year
  Sex: Male
  Weight: 85.9 kg

DRUGS (5)
  1. CIPROFLOXACIN [Concomitant]
     Dates: start: 20110111
  2. ACYCLOVIR [Concomitant]
     Dates: start: 20101218
  3. OFATUMUMAB [Suspect]
     Indication: B-CELL LYMPHOMA
     Dosage: 1000MG CYCLIC
     Route: 042
     Dates: start: 20100922
  4. BACTRIM [Concomitant]
     Dates: start: 20101218
  5. BENDAMUSTINE [Suspect]
     Indication: B-CELL LYMPHOMA
     Dosage: 90MGM2 CYCLIC
     Route: 042
     Dates: start: 20100922

REACTIONS (2)
  - TOOTH ABSCESS [None]
  - FEBRILE NEUTROPENIA [None]
